FAERS Safety Report 24181495 (Version 1)
Quarter: 2024Q3

REPORT INFORMATION
  Report Type: Report from Study
  Country: US (occurrence: US)
  Receive Date: 20240807
  Receipt Date: 20240807
  Transmission Date: 20241016
  Serious: Yes (Other)
  Sender: ABBVIE
  Company Number: US-ABBVIE-5864540

PATIENT
  Age: 39 Year
  Sex: Female

DRUGS (4)
  1. SKYRIZI [Suspect]
     Active Substance: RISANKIZUMAB-RZAA
     Indication: Crohn^s disease
     Dosage: FORM STRENGTH : 360MG/2.4M
     Route: 058
     Dates: start: 2023, end: 202403
  2. SKYRIZI [Suspect]
     Active Substance: RISANKIZUMAB-RZAA
     Indication: Crohn^s disease
     Dosage: 600 MG/10ML IV INFUSION AT WEEK 0
     Route: 042
     Dates: start: 20230505, end: 20230505
  3. SKYRIZI [Suspect]
     Active Substance: RISANKIZUMAB-RZAA
     Indication: Crohn^s disease
     Dosage: 600 MG/10ML IV INFUSION AT WEEK 4
     Route: 042
     Dates: start: 2023, end: 2023
  4. SKYRIZI [Suspect]
     Active Substance: RISANKIZUMAB-RZAA
     Indication: Crohn^s disease
     Dosage: 600 MG/10ML IV INFUSION AT WEEK 08
     Route: 042
     Dates: start: 20230705, end: 20230705

REACTIONS (1)
  - Small intestine carcinoma stage IV [Unknown]

NARRATIVE: CASE EVENT DATE: 20240501
